FAERS Safety Report 6366233-2 (Version None)
Quarter: 2009Q3

REPORT INFORMATION
  Report Type: 
  Country: None (occurrence: None)
  Receive Date: 20090921
  Receipt Date: 20090917
  Transmission Date: 20100115
  Serious: Yes (Death)
  Sender: FDA-Public Use
  Company Number: JP-JNJFOC-20090609814

PATIENT
  Sex: Female
  Weight: 39 kg

DRUGS (12)
  1. DUROTEP MT [Suspect]
     Route: 062
  2. DUROTEP MT [Suspect]
     Indication: CANCER PAIN
     Route: 062
  3. OXYCONTIN [Concomitant]
     Indication: CANCER PAIN
     Route: 048
  4. MORPHINE HYDROCHLORIDE [Concomitant]
     Route: 054
  5. MORPHINE HYDROCHLORIDE [Concomitant]
     Route: 054
  6. MORPHINE HYDROCHLORIDE [Concomitant]
     Indication: CANCER PAIN
     Route: 054
  7. VOLTAREN [Concomitant]
     Route: 054
  8. VOLTAREN [Concomitant]
     Route: 054
  9. VOLTAREN [Concomitant]
     Route: 054
  10. VOLTAREN [Concomitant]
     Indication: CANCER PAIN
     Route: 054
  11. LEPETAN [Concomitant]
     Route: 054
  12. LEPETAN [Concomitant]
     Indication: CANCER PAIN
     Route: 054

REACTIONS (2)
  - INAPPROPRIATE SCHEDULE OF DRUG ADMINISTRATION [None]
  - PANCREATIC CARCINOMA [None]
